FAERS Safety Report 8396685-8 (Version None)
Quarter: 2012Q2

REPORT INFORMATION
  Report Type: 
  Country: None (occurrence: None)
  Receive Date: 20120530
  Receipt Date: 20120523
  Transmission Date: 20120825
  Serious: Yes (Hospitalization)
  Sender: FDA-Public Use
  Company Number: NG-B.I. PHARMACEUTICALS,INC./RIDGEFIELD-2012-EU-02839GD

PATIENT
  Age: 40 Year
  Sex: Female

DRUGS (4)
  1. NEVIRAPINE [Suspect]
     Indication: HIV INFECTION
     Dosage: 400 MG
  2. ACETAMINOPHEN [Concomitant]
     Indication: PAIN
  3. TRUVADA [Suspect]
     Indication: HIV INFECTION
     Dosage: STRENGTH: TABLET OF TENOFOVIR 300 MG + EMTRICITABINE 300 MG
     Route: 048
  4. PIROXICAM [Concomitant]
     Indication: PAIN

REACTIONS (2)
  - IMMUNE RECONSTITUTION SYNDROME [None]
  - DERMATOMYOSITIS [None]
